FAERS Safety Report 17948488 (Version 1)
Quarter: 2020Q2

REPORT INFORMATION
  Report Type: Spontaneous
  Country: DE (occurrence: DE)
  Receive Date: 20200626
  Receipt Date: 20200626
  Transmission Date: 20200714
  Serious: Yes (Hospitalization, Other)
  Sender: FDA-Public Use
  Company Number: NVSC2020DE178653

PATIENT
  Sex: Female

DRUGS (2)
  1. BEOVU [Suspect]
     Active Substance: BROLUCIZUMAB-DBLL
     Dosage: UNK
     Route: 031
     Dates: start: 20200428, end: 20200428
  2. BEOVU [Suspect]
     Active Substance: BROLUCIZUMAB-DBLL
     Indication: AGE-RELATED MACULAR DEGENERATION
     Dosage: UNK
     Route: 031
     Dates: start: 20200421, end: 20200421

REACTIONS (7)
  - Endophthalmitis [Recovered/Resolved]
  - Ocular hyperaemia [Recovered/Resolved]
  - Intraocular pressure increased [Recovered/Resolved]
  - Vitreous floaters [Recovered/Resolved]
  - Hepatic cirrhosis [Unknown]
  - Visual impairment [Recovered/Resolved]
  - Uveitis [Recovered/Resolved]

NARRATIVE: CASE EVENT DATE: 20200504
